FAERS Safety Report 9936960 (Version 1)
Quarter: 2014Q1

REPORT INFORMATION
  Report Type: Spontaneous
  Country: US (occurrence: None)
  Receive Date: 20140115
  Receipt Date: 20140115
  Transmission Date: 20141002
  Serious: No
  Sender: FDA-Public Use
  Company Number: 2013US002581

PATIENT
  Age: 75 Year
  Sex: Male
  Weight: 82 kg

DRUGS (4)
  1. ICLUSIG (PONATINIB) TABLET, 45MG [Suspect]
     Indication: CHRONIC MYELOID LEUKAEMIA
     Route: 048
     Dates: start: 20130921
  2. EXFORGE (AMLODIPINE BESILATE, VALSARTAN) [Concomitant]
  3. SYNTHROID (LEVOTHYROXINE SODIUM) [Concomitant]
  4. MULTIVITAMIN (VITAMINS NOS) [Concomitant]

REACTIONS (1)
  - Chest pain [None]
